FAERS Safety Report 18134552 (Version 5)
Quarter: 2020Q4

REPORT INFORMATION
  Report Type: Spontaneous
  Country: US (occurrence: US)
  Receive Date: 20200811
  Receipt Date: 20201016
  Transmission Date: 20210113
  Serious: Yes (Death, Other)
  Sender: FDA-Public Use
  Company Number: US-PFIZER INC-2020305182

PATIENT
  Age: 61 Year
  Sex: Female
  Weight: 75.28 kg

DRUGS (1)
  1. IBRANCE [Suspect]
     Active Substance: PALBOCICLIB
     Dosage: 125 MG

REACTIONS (4)
  - Neoplasm progression [Fatal]
  - Hypercalcaemia [Fatal]
  - General physical health deterioration [Unknown]
  - Encephalopathy [Fatal]
